FAERS Safety Report 9435677 (Version 1)
Quarter: 2013Q3

REPORT INFORMATION
  Report Type: Report from Study
  Country: CA (occurrence: CA)
  Receive Date: 20130801
  Receipt Date: 20130801
  Transmission Date: 20140515
  Serious: Yes (Other)
  Sender: FDA-Public Use
  Company Number: CA-US-EMD SERONO, INC.-7226184

PATIENT
  Age: 12 Year
  Sex: Female
  Weight: 47 kg

DRUGS (3)
  1. SAIZEN [Suspect]
     Indication: GROWTH HORMONE DEFICIENCY
     Dates: start: 20120604, end: 20120713
  2. SAIZEN [Suspect]
     Dates: start: 20120713, end: 20120810
  3. SAIZEN [Suspect]
     Dates: start: 20120810, end: 201210

REACTIONS (1)
  - Sleep apnoea syndrome [Recovered/Resolved]
